FAERS Safety Report 6291687-X (Version None)
Quarter: 2009Q3

REPORT INFORMATION
  Report Type: 
  Country: None (occurrence: None)
  Receive Date: 20090730
  Receipt Date: 20090730
  Transmission Date: 20100115
  Serious: Yes (Other)
  Sender: FDA-Public Use
  Company Number: None

PATIENT
  Sex: Female
  Weight: 176.9028 kg

DRUGS (1)
  1. DEPO-PROVERA [Suspect]

REACTIONS (1)
  - POLYCYSTIC OVARIES [None]
